FAERS Safety Report 14765118 (Version 13)
Quarter: 2018Q4

REPORT INFORMATION
  Report Type: Spontaneous
  Country: FR (occurrence: FR)
  Receive Date: 20180416
  Receipt Date: 20181109
  Transmission Date: 20190204
  Serious: Yes (Other)
  Sender: FDA-Public Use
  Company Number: FR-PFIZER INC-2018153140

PATIENT
  Age: 77 Year
  Sex: Male

DRUGS (3)
  1. VORICONAZOLE. [Suspect]
     Active Substance: VORICONAZOLE
     Dosage: 200 MG, DAILY (HALVED)
  2. VORICONAZOLE. [Suspect]
     Active Substance: VORICONAZOLE
     Indication: BRONCHOPULMONARY ASPERGILLOSIS
     Dosage: 200 MG, 2X/DAY
  3. VORICONAZOLE. [Suspect]
     Active Substance: VORICONAZOLE
     Dosage: 100 MG, DAILY (REDUCED)

REACTIONS (7)
  - Dyschromatopsia [Recovering/Resolving]
  - Vision blurred [Unknown]
  - Hallucination, visual [Recovered/Resolved]
  - Visual field defect [Recovering/Resolving]
  - Visual acuity reduced [Recovering/Resolving]
  - Photophobia [Not Recovered/Not Resolved]
  - Retinal toxicity [Recovering/Resolving]
